FAERS Safety Report 9659025 (Version 2)
Quarter: 2014Q1

REPORT INFORMATION
  Report Type: Spontaneous
  Country: US (occurrence: US)
  Receive Date: 20131031
  Receipt Date: 20140128
  Transmission Date: 20141002
  Serious: Yes (Hospitalization)
  Sender: FDA-Public Use
  Company Number: US-BIOGENIDEC-2013BI103518

PATIENT
  Age: 46 Year
  Sex: Female

DRUGS (27)
  1. TYSABRI [Suspect]
     Indication: CROHN^S DISEASE
     Route: 042
     Dates: start: 20130528
  2. TYSABRI [Suspect]
     Indication: CROHN^S DISEASE
     Route: 042
     Dates: start: 20130703
  3. TYSABRI [Suspect]
     Indication: CROHN^S DISEASE
     Route: 042
     Dates: start: 20130805
  4. XANAX [Concomitant]
  5. NEURONTIN [Concomitant]
  6. ATENOLOL [Concomitant]
  7. CREON [Concomitant]
  8. MESALAMINE [Concomitant]
  9. PRILOSEC [Concomitant]
  10. TRILEPTAL [Concomitant]
  11. AMBIEN [Concomitant]
  12. NYSTATIN [Concomitant]
  13. OXYCODONE [Concomitant]
  14. BUMEX [Concomitant]
  15. LOTRISONE [Concomitant]
  16. LIDOCAINE [Concomitant]
  17. NICOTINE [Concomitant]
  18. PROTONIX [Concomitant]
  19. TYLENOL [Concomitant]
  20. DILAUDID [Concomitant]
  21. LOMOTIL [Concomitant]
  22. MUCINEX [Concomitant]
  23. POTASSIUM [Concomitant]
  24. MAGNESIUM [Concomitant]
  25. ZOFRAN [Concomitant]
  26. PHENERGAN [Concomitant]
  27. ATIVAN [Concomitant]

REACTIONS (16)
  - Staphylococcal sepsis [Unknown]
  - Septic embolus [Unknown]
  - Rectal haemorrhage [Not Recovered/Not Resolved]
  - Renal failure acute [Unknown]
  - Jugular vein thrombosis [Unknown]
  - Complex regional pain syndrome [Unknown]
  - Crohn^s disease [Unknown]
  - Gastrointestinal haemorrhage [Unknown]
  - Pulmonary mass [Unknown]
  - Polyneuropathy [Unknown]
  - Deep vein thrombosis [Unknown]
  - Thrombosis in device [Unknown]
  - Electrolyte imbalance [Unknown]
  - Drug ineffective [Unknown]
  - Blood potassium decreased [Unknown]
  - Pneumonia [Unknown]
